FAERS Safety Report 9772034 (Version 1)
Quarter: 2013Q4

REPORT INFORMATION
  Report Type: Spontaneous
  Country: US (occurrence: None)
  Receive Date: 20131218
  Receipt Date: 20131218
  Transmission Date: 20140711
  Serious: Yes (Death)
  Sender: FDA-Public Use
  Company Number: None

PATIENT
  Age: 62 Year
  Sex: Male
  Weight: 113.4 kg

DRUGS (2)
  1. Z-PAK [Suspect]
     Indication: NASOPHARYNGITIS
  2. Z-PAK [Suspect]
     Indication: SINUSITIS

REACTIONS (1)
  - Malaise [None]
